FAERS Safety Report 7994774-0 (Version None)
Quarter: 2011Q4

REPORT INFORMATION
  Report Type: 
  Country: None (occurrence: None)
  Receive Date: 20111220
  Receipt Date: 20111215
  Transmission Date: 20120403
  Serious: Yes (Hospitalization)
  Sender: FDA-Public Use
  Company Number: DE-ROCHE-1001056

PATIENT
  Age: 62 Year
  Sex: Male
  Weight: 75.5 kg

DRUGS (10)
  1. PANTOPRAZOLE [Concomitant]
     Dates: start: 20110713
  2. RAMIPRIL [Concomitant]
     Dates: start: 20110713
  3. FRAXIPARIN [Concomitant]
     Dosage: 0.3/ML
     Dates: start: 20110713
  4. SULFAMETHOXAZOLE AND TRIMETHOPRIM [Suspect]
     Indication: PRODUCT USED FOR UNKNOWN INDICATION
  5. IRINOTECAN HCL [Suspect]
     Indication: GLIOBLASTOMA
     Dosage: DATE OF LAST DOSE PRIOR TO SAE 14/SEP/2011
     Route: 042
     Dates: start: 20110914
  6. NOVALGIN [Concomitant]
     Dosage: 30/DROPS
     Dates: start: 20110713
  7. KEPPRA [Concomitant]
     Dates: start: 20110713
  8. FURADANTIN RETARD [Concomitant]
     Dates: start: 20110908, end: 20110916
  9. FORTECORTIN [Concomitant]
     Dates: start: 20110713
  10. AVASTIN [Suspect]
     Indication: GLIOBLASTOMA
     Dosage: LAST DOSE PRIOR TO SAE WAS 14 SEP 2011
     Route: 042
     Dates: start: 20110803

REACTIONS (3)
  - RENAL FAILURE [None]
  - PULMONARY EMBOLISM [None]
  - GENERAL PHYSICAL CONDITION ABNORMAL [None]
